FAERS Safety Report 9020742 (Version 1)
Quarter: 2013Q1

REPORT INFORMATION
  Report Type: Spontaneous
  Country: US (occurrence: US)
  Receive Date: 20130119
  Receipt Date: 20130119
  Transmission Date: 20140127
  Serious: No
  Sender: FDA-Public Use
  Company Number: US-ALLERGAN-1204502US

PATIENT
  Age: 43 Year
  Sex: Female

DRUGS (4)
  1. BOTOX? [Suspect]
     Indication: SKIN WRINKLING
     Dosage: UNK
     Route: 030
     Dates: start: 20120223, end: 20120223
  2. BOTOX? [Suspect]
     Indication: SKIN WRINKLING
     Dosage: UNK
     Route: 030
     Dates: start: 20120216, end: 20120216
  3. BOTOX? [Suspect]
     Indication: SKIN WRINKLING
  4. BOTOX? [Suspect]
     Indication: MIGRAINE

REACTIONS (3)
  - Periorbital contusion [Unknown]
  - Drug ineffective [Unknown]
  - Injection site pain [Unknown]
